FAERS Safety Report 21957622 (Version 1)
Quarter: 2023Q1

REPORT INFORMATION
  Report Type: Spontaneous
  Country: US (occurrence: None)
  Receive Date: 20230203
  Receipt Date: 20230203
  Transmission Date: 20230418
  Serious: Yes (Life-Threatening)
  Sender: FDA-Public Use
  Company Number: None

PATIENT
  Age: 63 Year
  Sex: Male
  Weight: 87.09 kg

DRUGS (1)
  1. LUMASON [Suspect]
     Active Substance: SULFUR HEXAFLUORIDE
     Dates: start: 20230202, end: 20230202

REACTIONS (11)
  - Distributive shock [None]
  - Contrast media reaction [None]
  - Seizure [None]
  - Hot flush [None]
  - Paraesthesia [None]
  - Pulse absent [None]
  - Lethargy [None]
  - Hyperhidrosis [None]
  - Unresponsive to stimuli [None]
  - Discomfort [None]
  - Muscular weakness [None]

NARRATIVE: CASE EVENT DATE: 20230202
